FAERS Safety Report 7352091-6 (Version None)
Quarter: 2011Q1

REPORT INFORMATION
  Report Type: 
  Country: None (occurrence: None)
  Receive Date: 20110315
  Receipt Date: 20110309
  Transmission Date: 20110831
  Serious: Yes (Other)
  Sender: FDA-Public Use
  Company Number: DE-ELI_LILLY_AND_COMPANY-DE201103000546

PATIENT
  Age: 69 Year
  Sex: Male

DRUGS (20)
  1. HUMULIN 70/30 [Suspect]
     Route: 058
  2. OMEPRAZOLE [Concomitant]
     Dosage: 100 D/F, UNK
  3. CARVEDILOL [Concomitant]
     Dosage: 100 D/F, UNK
  4. AMITRIPTYLINE HCL [Concomitant]
     Dosage: 20 D/F, UNK
     Dates: start: 20100101
  5. BETAGALEN [Concomitant]
     Dosage: 25 G, UNK
     Dates: start: 20100501
  6. AMLODIPIN /00972402/ [Concomitant]
     Dosage: 50 D/F, UNK
     Dates: start: 20100801
  7. AMLODIPINE [Concomitant]
  8. TORASEMIDE [Concomitant]
  9. AMOXICILLIN [Concomitant]
     Dosage: 20 D/F, UNK
     Dates: start: 20100401
  10. VITAMIN B-12 [Concomitant]
     Dosage: 20 ML, UNK
     Dates: start: 20100401
  11. IBUPROFEN [Concomitant]
     Dosage: 50 D/F, UNK
  12. TORASEMID [Concomitant]
     Dosage: 100 D/F, UNK
  13. GLIMEGAMMA [Concomitant]
     Dosage: 120 D/F, UNK
  14. METAMIZOLE [Concomitant]
     Dosage: 100 ML, UNK
     Dates: start: 20100501
  15. NEBIVOLOL [Concomitant]
     Dosage: 100 D/F, UNK
  16. TILIDIN HEXAL COMP [Concomitant]
     Dosage: 20 ML, UNK
     Dates: start: 20100101
  17. SIOFOR [Concomitant]
     Dosage: 120 D/F, UNK
     Dates: start: 20100101
  18. OXYTETRACYCLINE [Concomitant]
     Dosage: 5 G, UNK
     Dates: start: 20100901
  19. METFORMIN [Concomitant]
     Dosage: 120 D/F, UNK
  20. RAMIPRIL [Concomitant]
     Dosage: 100 D/F, UNK

REACTIONS (2)
  - BLOOD GLUCOSE FLUCTUATION [None]
  - HYPOGLYCAEMIA [None]
